FAERS Safety Report 7367131-8 (Version None)
Quarter: 2011Q1

REPORT INFORMATION
  Report Type: 
  Country: None (occurrence: None)
  Receive Date: 20110322
  Receipt Date: 20110310
  Transmission Date: 20110831
  Serious: Yes (Hospitalization)
  Sender: FDA-Public Use
  Company Number: JP-JNJFOC-20110305797

PATIENT
  Age: 37 Year
  Sex: Female

DRUGS (3)
  1. DUROTEP MT PATCH [Suspect]
     Indication: PRODUCT USED FOR UNKNOWN INDICATION
     Route: 062
  2. FENTANYL CITRATE [Suspect]
     Indication: PRODUCT USED FOR UNKNOWN INDICATION
     Route: 042
  3. MORPHINE [Concomitant]
     Route: 065

REACTIONS (5)
  - CONDITION AGGRAVATED [None]
  - DRUG TOLERANCE [None]
  - OFF LABEL USE [None]
  - DRUG EXPOSURE DURING PREGNANCY [None]
  - ABDOMINAL PAIN [None]
